FAERS Safety Report 4637925-8 (Version None)
Quarter: 2005Q2

REPORT INFORMATION
  Report Type: 
  Country: None (occurrence: None)
  Receive Date: 20050418
  Receipt Date: 20050311
  Transmission Date: 20051028
  Serious: Yes (Hospitalization)
  Sender: FDA-Public Use
  Company Number: JP-ROCHE-398970

PATIENT
  Age: 79 Year
  Sex: Male

DRUGS (15)
  1. TAMIFLU [Suspect]
     Route: 048
     Dates: start: 20050304, end: 20050304
  2. TAMIFLU [Suspect]
     Route: 048
     Dates: start: 20050301, end: 20050301
  3. TAMIFLU [Suspect]
     Route: 048
     Dates: start: 20050302, end: 20050303
  4. RIZE [Concomitant]
     Indication: DRUG USE FOR UNKNOWN INDICATION
     Route: 048
     Dates: start: 20050101
  5. MARZULENE S [Concomitant]
     Indication: DRUG USE FOR UNKNOWN INDICATION
     Route: 048
     Dates: start: 20050101
  6. MUCODYNE [Concomitant]
     Indication: DRUG USE FOR UNKNOWN INDICATION
     Route: 048
     Dates: start: 20050101
  7. MUCOSOLVAN [Concomitant]
     Indication: DRUG USE FOR UNKNOWN INDICATION
     Route: 048
     Dates: start: 20050101
  8. GRANDAXIN [Concomitant]
     Indication: DRUG USE FOR UNKNOWN INDICATION
     Route: 048
     Dates: start: 20050101
  9. QVAR 40 [Concomitant]
     Indication: DRUG USE FOR UNKNOWN INDICATION
     Dosage: DOSE FORM REPORTED AS ^RESPIRATORY (INHALATION)^
     Route: 055
     Dates: start: 20050101
  10. FRANDOL [Concomitant]
     Indication: DRUG USE FOR UNKNOWN INDICATION
     Dosage: DRUG NAME REPORTED AS ^FRANDOL S^ DOSAGE FORM REPORTED AS ^TAPE^
     Route: 061
     Dates: start: 20050101
  11. ALEVAIRE [Concomitant]
     Indication: DRUG USE FOR UNKNOWN INDICATION
     Dosage: DOSE FORM REPORTED AS ^RESPIRATORY (INHALATION)
     Route: 055
     Dates: start: 20050222, end: 20050315
  12. MEPTIN [Concomitant]
     Indication: DRUG USE FOR UNKNOWN INDICATION
     Route: 055
     Dates: start: 20050222, end: 20050315
  13. INTAL [Concomitant]
     Indication: DRUG USE FOR UNKNOWN INDICATION
     Dosage: DOSE FORM REPORTED AS ^RESPIRATORY (INHALATION)^
     Route: 055
     Dates: start: 20050222, end: 20050315
  14. SOLITA-T3 [Concomitant]
     Indication: DRUG USE FOR UNKNOWN INDICATION
     Route: 041
     Dates: start: 20050301, end: 20050306
  15. POTACOL R [Concomitant]
     Indication: DRUG USE FOR UNKNOWN INDICATION
     Route: 041
     Dates: start: 20050303, end: 20050306

REACTIONS (1)
  - WHITE BLOOD CELL COUNT DECREASED [None]
